FAERS Safety Report 12624473 (Version 1)
Quarter: 2016Q3

REPORT INFORMATION
  Report Type: Report from Study
  Country: US (occurrence: US)
  Receive Date: 20160805
  Receipt Date: 20160805
  Transmission Date: 20161109
  Serious: Yes (Hospitalization, Other)
  Sender: FDA-Public Use
  Company Number: US-AMGEN-USASL2016098854

PATIENT
  Age: 43 Year
  Sex: Female

DRUGS (2)
  1. ENBREL [Suspect]
     Active Substance: ETANERCEPT
     Indication: ANKYLOSING SPONDYLITIS
     Dosage: UNK
     Route: 065
     Dates: end: 2013
  2. ENBREL [Suspect]
     Active Substance: ETANERCEPT
     Indication: RHEUMATOID ARTHRITIS
     Dosage: 50 MG, QWK
     Route: 065
     Dates: start: 201605

REACTIONS (18)
  - Chills [Unknown]
  - Sinus operation [Unknown]
  - Adverse drug reaction [Not Recovered/Not Resolved]
  - Bite [Unknown]
  - Injection site scar [Recovered/Resolved]
  - Eye disorder [Unknown]
  - Staphylococcal infection [Unknown]
  - Ankylosing spondylitis [Not Recovered/Not Resolved]
  - Gastrointestinal ulcer [Unknown]
  - Thirst [Unknown]
  - Pneumonia [Not Recovered/Not Resolved]
  - Sleep talking [Unknown]
  - Dehydration [Unknown]
  - Pyrexia [Unknown]
  - Infection [Unknown]
  - Hypotension [Unknown]
  - Rheumatoid arthritis [Not Recovered/Not Resolved]
  - Hernia repair [Unknown]

NARRATIVE: CASE EVENT DATE: 2002
